FAERS Safety Report 14954884 (Version 2)
Quarter: 2018Q3

REPORT INFORMATION
  Report Type: Spontaneous
  Country: FR (occurrence: FR)
  Receive Date: 20180530
  Receipt Date: 20180817
  Transmission Date: 20181010
  Serious: Yes (Hospitalization)
  Sender: FDA-Public Use
  Company Number: FR-TEVA-2018-FR-899550

PATIENT
  Age: 66 Year
  Sex: Male
  Weight: 59 kg

DRUGS (18)
  1. FLUCONAZOLE. [Concomitant]
     Active Substance: FLUCONAZOLE
     Route: 065
  2. LOVENOX [Concomitant]
     Active Substance: ENOXAPARIN SODIUM
     Route: 065
  3. ROCEPHINE [Suspect]
     Active Substance: CEFTRIAXONE SODIUM
     Indication: PROSTATITIS
     Dosage: 1 GRAM DAILY;
     Route: 042
     Dates: start: 20180219, end: 20180305
  4. VOGALENE [Concomitant]
     Active Substance: METOPIMAZINE
     Route: 065
  5. MIANSERINE (CHLORHYDRATE DE) [Concomitant]
     Active Substance: MIANSERIN HYDROCHLORIDE
     Route: 065
  6. BRILIQUE [Concomitant]
     Active Substance: TICAGRELOR
  7. BISOCE [Concomitant]
     Active Substance: BISOPROLOL
     Route: 065
  8. LYRICA [Concomitant]
     Active Substance: PREGABALIN
     Route: 065
  9. VANCOMYCIN [Suspect]
     Active Substance: VANCOMYCIN
     Indication: PROSTATITIS
     Dosage: 1 GRAM DAILY;
     Route: 042
     Dates: start: 20180219, end: 20180219
  10. GENTAMICINE [Suspect]
     Active Substance: GENTAMICIN
     Indication: PROSTATITIS
     Dosage: 295 MILLIGRAM DAILY;
     Route: 042
     Dates: start: 20180220, end: 20180222
  11. DOLIPRANE [Concomitant]
     Active Substance: ACETAMINOPHEN
     Route: 065
  12. PRIMPERAN [Concomitant]
     Active Substance: METOCLOPRAMIDE HYDROCHLORIDE
     Route: 065
  13. TIENAM [Suspect]
     Active Substance: CILASTATIN SODIUM\IMIPENEM
     Indication: PROSTATITIS
     Dosage: 500 MILLIGRAM DAILY;
     Route: 042
     Dates: start: 20180224
  14. INEXIUM [Concomitant]
     Active Substance: ESOMEPRAZOLE
     Route: 065
  15. KEYTRUDA [Suspect]
     Active Substance: PEMBROLIZUMAB
     Indication: LUNG ADENOCARCINOMA
     Route: 042
     Dates: start: 20180201, end: 20180201
  16. CASPOFUNGINE BASE [Concomitant]
     Active Substance: CASPOFUNGIN
     Route: 065
  17. KARDEGIC [Concomitant]
     Active Substance: ASPIRIN DL-LYSINE
     Route: 065
  18. OXYNORM [Concomitant]
     Active Substance: OXYCODONE HYDROCHLORIDE
     Route: 065

REACTIONS (4)
  - Thrombocytopenia [Not Recovered/Not Resolved]
  - Anaemia [Recovering/Resolving]
  - Histiocytosis haematophagic [Recovered/Resolved]
  - Pancytopenia [Not Recovered/Not Resolved]

NARRATIVE: CASE EVENT DATE: 201802
